FAERS Safety Report 9582452 (Version 1)
Quarter: 2013Q4

REPORT INFORMATION
  Report Type: Spontaneous
  Country: US (occurrence: US)
  Receive Date: 20131002
  Receipt Date: 20131002
  Transmission Date: 20140711
  Serious: No
  Sender: FDA-Public Use
  Company Number: US-AMGEN-USASP2013040773

PATIENT
  Age: 51 Year
  Sex: Male

DRUGS (1)
  1. ENBREL [Suspect]
     Indication: CANDIDA INFECTION
     Dosage: 50 MG, QWK
     Route: 058
     Dates: end: 201302

REACTIONS (1)
  - Fungal infection [Unknown]
